FAERS Safety Report 7363845-4 (Version None)
Quarter: 2011Q1

REPORT INFORMATION
  Report Type: 
  Country: None (occurrence: None)
  Receive Date: 20110321
  Receipt Date: 20110308
  Transmission Date: 20110831
  Serious: Yes (Other)
  Sender: FDA-Public Use
  Company Number: FR-JNJFOC-20091004092

PATIENT
  Age: 28 Year
  Sex: Female
  Weight: 60 kg

DRUGS (7)
  1. ACETAMINOPHEN [Concomitant]
  2. REMICADE [Suspect]
     Route: 042
     Dates: start: 20090605, end: 20090911
  3. REMICADE [Suspect]
     Route: 042
     Dates: start: 20090605, end: 20090911
  4. REMICADE [Suspect]
     Route: 042
     Dates: start: 20090605, end: 20090911
  5. REMICADE [Suspect]
     Route: 042
     Dates: start: 20090605, end: 20090911
  6. REMICADE [Suspect]
     Indication: CROHN'S DISEASE
     Route: 042
     Dates: start: 20090605, end: 20090911
  7. ROVAMYCINE [Concomitant]

REACTIONS (2)
  - DRUG EXPOSURE DURING PREGNANCY [None]
  - PREMATURE LABOUR [None]
